FAERS Safety Report 7778608-5 (Version None)
Quarter: 2011Q3

REPORT INFORMATION
  Report Type: 
  Country: None (occurrence: None)
  Receive Date: 20110926
  Receipt Date: 20110921
  Transmission Date: 20111222
  Serious: Yes (Other)
  Sender: FDA-Public Use
  Company Number: US-BAYER-2011-052686

PATIENT
  Sex: Male
  Weight: 71 kg

DRUGS (20)
  1. RENAGEL [Concomitant]
  2. BUSPAR [Concomitant]
  3. LEXAPRO [Concomitant]
  4. MAGNEVIST [Suspect]
     Indication: NUCLEAR MAGNETIC RESONANCE IMAGING ABDOMINAL
     Dosage: UNK
     Dates: start: 20010731, end: 20010731
  5. MINOXIDIL [Concomitant]
  6. LASIX [Concomitant]
  7. VASOTEC [Concomitant]
  8. COUMADIN [Concomitant]
  9. PROCARDIA [Concomitant]
  10. PREDNISONE [Concomitant]
  11. DIGOXIN [Concomitant]
  12. GADOLINIUM IN UNSPECIFIED DRUG [Suspect]
     Indication: NUCLEAR MAGNETIC RESONANCE IMAGING
     Dosage: UNK
     Dates: start: 19971106, end: 19971106
  13. GADOLINIUM IN UNSPECIFIED DRUG [Suspect]
     Indication: NUCLEAR MAGNETIC RESONANCE IMAGING ABDOMINAL
     Dosage: UNK
     Dates: start: 19991111, end: 19991111
  14. FERROUS SULFATE TAB [Concomitant]
  15. SENSIPAR [Concomitant]
  16. TOPROL-XL [Concomitant]
  17. GADOLINIUM IN UNSPECIFIED DRUG [Suspect]
     Dosage: UNK
     Dates: start: 20000630, end: 20000630
  18. INDERAL [Concomitant]
  19. LISINOPRIL [Concomitant]
  20. NORVASC [Concomitant]

REACTIONS (6)
  - INJURY [None]
  - ANXIETY [None]
  - NEPHROGENIC SYSTEMIC FIBROSIS [None]
  - PAIN [None]
  - EMOTIONAL DISTRESS [None]
  - DISABILITY [None]
